FAERS Safety Report 7274043-7 (Version None)
Quarter: 2011Q1

REPORT INFORMATION
  Report Type: 
  Country: None (occurrence: None)
  Receive Date: 20110203
  Receipt Date: 20110126
  Transmission Date: 20110831
  Serious: Yes (Hospitalization)
  Sender: FDA-Public Use
  Company Number: US-BRISTOL-MYERS SQUIBB COMPANY-15414444

PATIENT
  Age: 69 Year
  Sex: Female
  Weight: 65 kg

DRUGS (15)
  1. CYTOXAN [Suspect]
     Indication: BREAST CANCER
     Dosage: RECENT INFUSION 20JAN2011,870 MG
     Route: 042
     Dates: start: 20101118
  2. OMACOR [Concomitant]
     Indication: SUPPLEMENTATION THERAPY
     Dosage: 1 DF = 1 TAB
  3. PREVACID [Concomitant]
     Indication: GASTROENTERITIS
     Dates: start: 20050101
  4. FLEXERIL [Concomitant]
     Indication: FIBROMYALGIA
     Dates: start: 20101217
  5. LEXAPRO [Concomitant]
     Indication: DEPRESSION
     Dates: start: 20000101
  6. LEVOXYL [Concomitant]
     Indication: HYPOTHYROIDISM
     Dates: start: 19890101
  7. CRESTOR [Concomitant]
     Indication: HYPERLIPIDAEMIA
     Dates: start: 20050101
  8. COUMADIN [Concomitant]
     Dates: start: 20101118
  9. ADRIAMYCIN PFS [Suspect]
     Indication: BREAST CANCER
     Dosage: RECENT DOSE 20JAN2011,87 MG 2ND LOT NUMBER: 1812761.
     Route: 042
     Dates: start: 20101118
  10. DARVOCET-N 100 [Concomitant]
     Indication: PAIN
  11. VITAMIN D [Concomitant]
     Indication: SUPPLEMENTATION THERAPY
     Dates: start: 20070101
  12. TOPAMAX [Concomitant]
     Indication: FIBROMYALGIA
     Dates: start: 20060101
  13. ADDERALL 10 [Concomitant]
     Indication: FIBROMYALGIA
     Dates: start: 20090101
  14. KLONOPIN [Concomitant]
     Indication: FIBROMYALGIA
     Dates: start: 20080101
  15. ALDACTAZIDE [Concomitant]
     Dates: start: 20000101

REACTIONS (2)
  - DEHYDRATION [None]
  - FEBRILE NEUTROPENIA [None]
